FAERS Safety Report 17555375 (Version 1)
Quarter: 2020Q1

REPORT INFORMATION
  Report Type: Spontaneous
  Country: US (occurrence: US)
  Receive Date: 20200318
  Receipt Date: 20200318
  Transmission Date: 20200409
  Serious: No
  Sender: FDA-Public Use
  Company Number: US-VERTEX PHARMACEUTICALS-2020-005170

PATIENT
  Sex: Male

DRUGS (3)
  1. TRIKAFTA [Suspect]
     Active Substance: ELEXACAFTOR\IVACAFTOR\TEZACAFTOR
     Indication: CYSTIC FIBROSIS
     Dosage: 100MG  ELEXACAFTOR/ 50MG TEZACAFTOR/ 75MG IVACAFTOR 2 TABLETS IN THE MORNING  AND 150MG IVACAFTOR 1
     Route: 048
     Dates: start: 201912
  2. CAYSTON [Concomitant]
     Active Substance: AZTREONAM
  3. PULMOZYME [Concomitant]
     Active Substance: DORNASE ALFA

REACTIONS (1)
  - Nasopharyngitis [Unknown]
